FAERS Safety Report 4864041-2 (Version None)
Quarter: 2005Q4

REPORT INFORMATION
  Report Type: 
  Country: None (occurrence: None)
  Receive Date: 20051219
  Receipt Date: 20051205
  Transmission Date: 20060501
  Serious: Yes (Hospitalization)
  Sender: FDA-Public Use
  Company Number: 2005165434

PATIENT
  Age: 56 Year
  Sex: Female

DRUGS (5)
  1. VIAGRA [Suspect]
     Indication: PULMONARY HYPERTENSION
     Dosage: 125 MG (3 IN 1 D), ORAL
     Route: 048
  2. TRACLEER [Concomitant]
  3. DILTIAZEM [Concomitant]
  4. OMEPRAZOLE [Concomitant]
  5. LEVOTHYROXINE SODIUM [Concomitant]

REACTIONS (6)
  - ARRHYTHMIA [None]
  - ARTHRALGIA [None]
  - BONE PAIN [None]
  - DIZZINESS [None]
  - HYPERTENSION [None]
  - VESTIBULAR DISORDER [None]
